FAERS Safety Report 8327972-7 (Version None)
Quarter: 2012Q2

REPORT INFORMATION
  Report Type: 
  Country: None (occurrence: None)
  Receive Date: 20120502
  Receipt Date: 20120424
  Transmission Date: 20120825
  Serious: Yes (Hospitalization, Other)
  Sender: FDA-Public Use
  Company Number: US-BAYER-2011-041759

PATIENT
  Age: 53 Year
  Sex: Female
  Weight: 73.469 kg

DRUGS (6)
  1. PREVACID [Concomitant]
     Indication: GASTRITIS
  2. OMEPRAZOLE [Concomitant]
     Indication: ABDOMINAL PAIN UPPER
     Dosage: UNK
     Dates: start: 20070101
  3. YASMIN [Suspect]
     Indication: CONTRACEPTION
     Dosage: UNK UNK, QD
     Dates: start: 20051001, end: 20080501
  4. ADVAIR DISKUS 100/50 [Concomitant]
     Indication: ASTHMA
     Dosage: UNK
     Dates: start: 20070101
  5. YAZ [Suspect]
     Indication: CONTRACEPTION
     Dosage: UNK UNK, QD
     Dates: start: 20051001, end: 20080501
  6. MAGNESIUM HYDROXIDE TAB [Concomitant]

REACTIONS (14)
  - ABDOMINAL DISTENSION [None]
  - FLATULENCE [None]
  - DYSPEPSIA [None]
  - CHOLECYSTITIS ACUTE [None]
  - CONSTIPATION [None]
  - DIARRHOEA [None]
  - PAIN [None]
  - GASTRIC DISORDER [None]
  - ANXIETY [None]
  - MENTAL DISORDER [None]
  - GALLBLADDER DISORDER [None]
  - EMOTIONAL DISTRESS [None]
  - FRUSTRATION [None]
  - SCAR [None]
